FAERS Safety Report 4366441-6 (Version None)
Quarter: 2004Q2

REPORT INFORMATION
  Report Type: 
  Country: None (occurrence: None)
  Receive Date: 20040527
  Receipt Date: 20040329
  Transmission Date: 20050107
  Serious: Yes (Other)
  Sender: FDA-Public Use
  Company Number: US-BRISTOL-MYERS SQUIBB COMPANY-12544052

PATIENT
  Age: 74 Year
  Sex: Male
  Weight: 82 kg

DRUGS (3)
  1. ERBITUX [Suspect]
     Indication: COLON CANCER
     Dosage: 16-MAR-04 (800 MG LOAD DOSE,LOT #03C00103), 2ND INFUSION 23-MAR-2004 (500 MG,LOT #03C00094)
     Route: 042
     Dates: start: 20040316, end: 20040316
  2. BENADRYL [Concomitant]
     Indication: PREMEDICATION
     Dosage: PRE-MEDICATION, 50 MG IV 1ST INFUSION, AND 50 MG 2CD INFUSION (23-MAR-2004)
     Route: 042
  3. CAMPTOSAR [Concomitant]
     Dosage: 270 MG, EVERY 2 WEEKS.
     Dates: start: 20040316

REACTIONS (1)
  - DERMATITIS ACNEIFORM [None]
